FAERS Safety Report 7350686-7 (Version None)
Quarter: 2011Q1

REPORT INFORMATION
  Report Type: 
  Country: None (occurrence: None)
  Receive Date: 20110222
  Receipt Date: 20101102
  Transmission Date: 20110831
  Serious: No
  Sender: FDA-Public Use
  Company Number: 021476

PATIENT
  Sex: Female
  Weight: 55 kg

DRUGS (5)
  1. ATENOLOL [Concomitant]
  2. CALCIUM [Concomitant]
  3. LACOSAMIDE [Suspect]
     Indication: CONVULSION
     Dosage: (100 MG BID ORAL), (100 MG TID ORAL)
     Route: 048
     Dates: start: 20101027
  4. LACOSAMIDE [Suspect]
     Indication: CONVULSION
     Dosage: (100 MG BID ORAL), (100 MG TID ORAL)
     Route: 048
     Dates: start: 20100903, end: 20101001
  5. MAGNESIUM [Concomitant]

REACTIONS (2)
  - AURA [None]
  - FEELING ABNORMAL [None]
